FAERS Safety Report 7705803-3 (Version None)
Quarter: 2011Q3

REPORT INFORMATION
  Report Type: 
  Country: None (occurrence: None)
  Receive Date: 20110824
  Receipt Date: 20110824
  Transmission Date: 20111222
  Serious: No
  Sender: FDA-Public Use
  Company Number: None

PATIENT
  Age: 52 Year
  Sex: Female
  Weight: 122.46 kg

DRUGS (1)
  1. PROMETRIUM [Suspect]
     Indication: PROGESTERONE DECREASED
     Dosage: ONE CAPSULE
     Route: 048
     Dates: start: 20110323, end: 20110818

REACTIONS (2)
  - VAGINAL HAEMORRHAGE [None]
  - ABDOMINAL DISTENSION [None]
